FAERS Safety Report 8790096 (Version 1)
Quarter: 2012Q4

REPORT INFORMATION
  Report Type: 
  Country: US (occurrence: US)
  Receive Date: 20120917
  Receipt Date: 20120917
  Transmission Date: 20130627
  Serious: No
  Sender: FDA-Public Use
  Company Number: US-009507513-1209USA002931

PATIENT

DRUGS (5)
  1. SAPHRIS [Suspect]
     Indication: SCHIZOAFFECTIVE DISORDER
     Dosage: UNK
     Route: 048
     Dates: start: 2011
  2. SAPHRIS [Suspect]
     Indication: DEPRESSION
     Dosage: 10 mg, qd (QHS)
     Route: 048
     Dates: start: 201205
  3. SAPHRIS [Suspect]
     Dosage: 5 mg in the morning and 10 mg HS , bid
     Route: 048
  4. SAPHRIS [Suspect]
     Dosage: 15 mg, qd (QHS)
     Route: 048
  5. LITHIUM [Concomitant]

REACTIONS (3)
  - Hypoaesthesia oral [Recovering/Resolving]
  - Depression [Unknown]
  - Flat affect [Unknown]
